FAERS Safety Report 6884736-9 (Version None)
Quarter: 2010Q3

REPORT INFORMATION
  Report Type: 
  Country: None (occurrence: None)
  Receive Date: 20100729
  Receipt Date: 20070823
  Transmission Date: 20110219
  Serious: Yes (Other)
  Sender: FDA-Public Use
  Company Number: US-PFIZER INC-2007070082

PATIENT
  Sex: Male

DRUGS (7)
  1. CELEBREX [Suspect]
     Indication: ARTHRALGIA
     Dates: start: 20070817, end: 20070822
  2. LIPITOR [Concomitant]
  3. VASOTEC [Concomitant]
  4. DIOVAN [Concomitant]
  5. SINGULAIR [Concomitant]
  6. BYETTA [Concomitant]
  7. DRUG, UNSPECIFIED [Concomitant]
     Route: 051

REACTIONS (1)
  - BLOOD GLUCOSE INCREASED [None]
